FAERS Safety Report 4713674-2 (Version None)
Quarter: 2005Q3

REPORT INFORMATION
  Report Type: 
  Country: None (occurrence: None)
  Receive Date: 20050713
  Receipt Date: 20050628
  Transmission Date: 20060218
  Serious: Yes (Other)
  Sender: FDA-Public Use
  Company Number: US_0504115258

PATIENT
  Age: 45 Year
  Sex: Female
  Weight: 94.3482 kg

DRUGS (9)
  1. ZYPREXA [Suspect]
     Indication: DEPRESSION
     Dosage: 15 MG
     Dates: start: 19990707, end: 20010628
  2. PROZAC [Concomitant]
  3. RISPERDAL [Concomitant]
  4. DIVALPROEX (VALPROATE SEMISODIUM) [Concomitant]
  5. DESYREL [Concomitant]
  6. BUPROPION HCL [Concomitant]
  7. TOPAMAX [Concomitant]
  8. TEQUIN [Concomitant]
  9. DIFLUCAN [Concomitant]

REACTIONS (9)
  - BLOOD CHOLESTEROL ABNORMAL [None]
  - BLOOD TRIGLYCERIDES INCREASED [None]
  - DIABETES MELLITUS [None]
  - HYPERGLYCAEMIA [None]
  - HYPOAESTHESIA [None]
  - HYPOGLYCAEMIA [None]
  - HYSTERECTOMY [None]
  - NERVE ROOT LESION [None]
  - SALPINGO-OOPHORECTOMY BILATERAL [None]
